FAERS Safety Report 7156706-7 (Version None)
Quarter: 2010Q4

REPORT INFORMATION
  Report Type: 
  Country: None (occurrence: None)
  Receive Date: 20101214
  Receipt Date: 20091201
  Transmission Date: 20110411
  Serious: No
  Sender: FDA-Public Use
  Company Number: US-ASTRAZENECA-2009SE29742

PATIENT
  Sex: Female
  Weight: 74.4 kg

DRUGS (5)
  1. CRESTOR [Suspect]
     Route: 048
     Dates: start: 20090101
  2. SYNTHROID [Concomitant]
  3. LASIX [Concomitant]
  4. ASPIRIN [Concomitant]
  5. WELLBUTRIN [Concomitant]

REACTIONS (1)
  - DRY MOUTH [None]
